FAERS Safety Report 7609646-0 (Version None)
Quarter: 2011Q3

REPORT INFORMATION
  Report Type: 
  Country: None (occurrence: None)
  Receive Date: 20110714
  Receipt Date: 20110713
  Transmission Date: 20111222
  Serious: Yes (Hospitalization)
  Sender: FDA-Public Use
  Company Number: ES-BRISTOL-MYERS SQUIBB COMPANY-15846082

PATIENT
  Age: 65 Year
  Sex: Male
  Weight: 79 kg

DRUGS (16)
  1. DEXAMETHASONE [Concomitant]
     Indication: PROPHYLAXIS
     Dates: start: 20110408
  2. AMLODIPINE [Concomitant]
     Indication: HYPERTENSION
     Dates: start: 20030101
  3. EBASTINE [Concomitant]
     Indication: RADIATION SKIN INJURY
     Dates: start: 20110504
  4. CISPLATIN [Suspect]
     Indication: NON-SMALL CELL LUNG CANCER STAGE III
     Dosage: LAST DOSE: 27MAY2011
     Route: 042
     Dates: start: 20110411
  5. OMEPRAZOLE [Concomitant]
     Indication: PROPHYLAXIS AGAINST GASTROINTESTINAL ULCER
     Dates: start: 20110408
  6. MOVIPREP [Concomitant]
     Indication: CONSTIPATION
     Dates: start: 20110414, end: 20110414
  7. SULFAMETHOXAZOLE AND TRIMETHOPRIM [Concomitant]
     Indication: LYMPHOPENIA
     Dates: start: 20110527
  8. VITAMIN B-12 [Concomitant]
     Indication: PROPHYLAXIS
     Dates: start: 20110330
  9. ACETAMINOPHEN [Concomitant]
     Indication: HEADACHE
     Dates: start: 20110418
  10. METAMIZOLE [Concomitant]
     Indication: DYSPHAGIA
     Dates: start: 20110527
  11. GLYBURIDE [Concomitant]
     Indication: TYPE 2 DIABETES MELLITUS
     Dates: start: 20030101
  12. OLMESARTAN MEDOXOMIL [Concomitant]
     Indication: HYPERTENSION
     Dates: start: 20030101
  13. ATORVASTATIN [Concomitant]
     Indication: HYPERCHOLESTEROLAEMIA
     Dates: start: 19910101
  14. ALIMTA [Suspect]
     Indication: NON-SMALL CELL LUNG CANCER STAGE III
     Dosage: LAST DOSE: 27MAY2011
     Route: 042
     Dates: start: 20110411
  15. FOLIC ACID [Concomitant]
     Indication: PROPHYLAXIS
     Dates: start: 20110330
  16. METFORMIN HCL [Concomitant]
     Indication: TYPE 2 DIABETES MELLITUS
     Dates: start: 20030101

REACTIONS (1)
  - OESOPHAGITIS [None]
